FAERS Safety Report 8663564 (Version 3)
Quarter: 2013Q2

REPORT INFORMATION
  Report Type: Spontaneous
  Country: US (occurrence: US)
  Receive Date: 20120713
  Receipt Date: 20130520
  Transmission Date: 20140414
  Serious: No
  Sender: FDA-Public Use
  Company Number: US-009507513-1206USA04501

PATIENT
  Age: 12 Year
  Sex: Female
  Weight: 37.19 kg

DRUGS (4)
  1. SINGULAIR [Suspect]
     Indication: ASTHMA
     Dosage: 5 MG, QD
     Route: 048
     Dates: start: 20120525, end: 20120625
  2. ZYRTEC [Concomitant]
  3. ALBUTEROL [Concomitant]
     Indication: ASTHMA
     Dosage: 0.63MG/3ML, PRN
  4. QVAR [Concomitant]
     Indication: ASTHMA
     Dosage: UNK DF, BID

REACTIONS (5)
  - Mood swings [Recovering/Resolving]
  - Aggression [Recovering/Resolving]
  - Crying [Recovering/Resolving]
  - Mood altered [Recovering/Resolving]
  - Abnormal behaviour [Unknown]
